FAERS Safety Report 6275363-5 (Version None)
Quarter: 2009Q3

REPORT INFORMATION
  Report Type: 
  Country: None (occurrence: None)
  Receive Date: 20090721
  Receipt Date: 20090715
  Transmission Date: 20100115
  Serious: Yes (Hospitalization)
  Sender: FDA-Public Use
  Company Number: JP-GENENTECH-286918

PATIENT
  Sex: Male

DRUGS (6)
  1. RITUXAN [Suspect]
     Indication: WALDENSTROM'S MACROGLOBULINAEMIA
     Dosage: 550 MG, UNK
     Route: 042
     Dates: start: 20090319
  2. RITUXAN [Suspect]
     Dosage: 550 MG, UNK
     Route: 042
     Dates: start: 20090414
  3. RITUXAN [Suspect]
     Dosage: 550 MG, UNK
     Route: 042
     Dates: start: 20090602
  4. FLUDARA [Concomitant]
     Indication: WALDENSTROM'S MACROGLOBULINAEMIA
     Dosage: 60 MG, QD
     Route: 048
     Dates: start: 20090320, end: 20090324
  5. FLUDARA [Concomitant]
     Dosage: 60 MG, QD
     Route: 048
     Dates: start: 20090417, end: 20090421
  6. FLUDARA [Concomitant]
     Dosage: 40 MG, QD
     Route: 048
     Dates: start: 20090609, end: 20090613

REACTIONS (1)
  - DISSEMINATED INTRAVASCULAR COAGULATION [None]
